FAERS Safety Report 6048094-4 (Version None)
Quarter: 2009Q1

REPORT INFORMATION
  Report Type: 
  Country: None (occurrence: None)
  Receive Date: 20090123
  Receipt Date: 20090121
  Transmission Date: 20090719
  Serious: Yes (Death, Other)
  Sender: FDA-Public Use
  Company Number: PHBS2009NL00560

PATIENT
  Sex: Female

DRUGS (1)
  1. OXYTOCIN [Suspect]
     Indication: INDUCED LABOUR
     Route: 064

REACTIONS (5)
  - DEATH [None]
  - DRUG EXPOSURE DURING PREGNANCY [None]
  - HAEMOGLOBIN DECREASED [None]
  - PREMATURE BABY [None]
  - RESUSCITATION [None]
